FAERS Safety Report 16250323 (Version 4)
Quarter: 2020Q1

REPORT INFORMATION
  Report Type: Spontaneous
  Country: US (occurrence: US)
  Receive Date: 20190429
  Receipt Date: 20200218
  Transmission Date: 20200409
  Serious: Yes (Hospitalization, Other)
  Sender: FDA-Public Use
  Company Number: US-PFIZER INC-2019174613

PATIENT
  Age: 53 Year
  Sex: Male
  Weight: 111.11 kg

DRUGS (2)
  1. XELJANZ [Suspect]
     Active Substance: TOFACITINIB CITRATE
     Dosage: UNK
  2. XELJANZ [Suspect]
     Active Substance: TOFACITINIB CITRATE
     Dosage: 5 MG, UNK
     Dates: end: 201910

REACTIONS (3)
  - Visual impairment [Recovered/Resolved]
  - Pneumonia [Recovered/Resolved]
  - Immune system disorder [Unknown]

NARRATIVE: CASE EVENT DATE: 2019
